FAERS Safety Report 6746870-3 (Version None)
Quarter: 2010Q2

REPORT INFORMATION
  Report Type: 
  Country: None (occurrence: None)
  Receive Date: 20100526
  Receipt Date: 20100415
  Transmission Date: 20101027
  Serious: Yes (Other)
  Sender: FDA-Public Use
  Company Number: 7002381

PATIENT
  Age: 30 Year
  Sex: Female

DRUGS (12)
  1. REBIF [Suspect]
     Indication: MULTIPLE SCLEROSIS
     Dosage: 44 MCG, 3 IN 1 WK
     Dates: start: 20091208
  2. DYPIRONE (METAMIZOLE SODIUM) [Suspect]
  3. PRIMID (PRIMIDONE) [Concomitant]
  4. MANTIDAN (AMANTADINE HYDROCHLORIDE) [Concomitant]
  5. SEROQUEL XRO (QUETIAPINE) [Concomitant]
  6. CLONAZEPAM [Concomitant]
  7. LITHIUM CARBONATE [Concomitant]
  8. LEXAPRO [Concomitant]
  9. YASMIN [Concomitant]
  10. PANTOGAR (PANTOGAR) [Concomitant]
  11. NEOZINE (LEVOMEPROMAZINE) [Concomitant]
  12. CYMBALTA [Concomitant]

REACTIONS (5)
  - ANAPHYLACTIC SHOCK [None]
  - CONTUSION [None]
  - DRUG HYPERSENSITIVITY [None]
  - PAIN IN EXTREMITY [None]
  - RADIATION SKIN INJURY [None]
